FAERS Safety Report 17477600 (Version 1)
Quarter: 2020Q1

REPORT INFORMATION
  Report Type: Spontaneous
  Country: US (occurrence: US)
  Receive Date: 20200228
  Receipt Date: 20200228
  Transmission Date: 20200409
  Serious: Yes (Hospitalization)
  Sender: FDA-Public Use
  Company Number: US-ASTRAZENECA-2020SE26988

PATIENT
  Age: 63 Year
  Sex: Male

DRUGS (2)
  1. ZOFRAN [Concomitant]
     Active Substance: ONDANSETRON HYDROCHLORIDE
  2. LYNPARZA [Suspect]
     Active Substance: OLAPARIB
     Indication: MALIGNANT NEOPLASM OF AMPULLA OF VATER
     Route: 048
     Dates: start: 201912

REACTIONS (3)
  - Nausea [Unknown]
  - Pyrexia [Not Recovered/Not Resolved]
  - Product dose omission [Unknown]
